FAERS Safety Report 24448639 (Version 1)
Quarter: 2024Q4

REPORT INFORMATION
  Report Type: Spontaneous
  Country: FR (occurrence: FR)
  Receive Date: 20241017
  Receipt Date: 20241017
  Transmission Date: 20250115
  Serious: Yes (Death)
  Sender: SANDOZ
  Company Number: None

PATIENT
  Age: 52 Year
  Sex: Female
  Weight: 50.3 kg

DRUGS (14)
  1. SERTRALINE HYDROCHLORIDE [Suspect]
     Active Substance: SERTRALINE HYDROCHLORIDE
     Indication: Bipolar disorder
     Dosage: 100 MG, QD
     Route: 048
     Dates: start: 2018
  2. TRAMADOL HYDROCHLORIDE [Suspect]
     Active Substance: TRAMADOL HYDROCHLORIDE
     Indication: Product used for unknown indication
     Dosage: 50 MG, Q6H
     Route: 048
     Dates: start: 2023
  3. LACTULOSE [Concomitant]
     Active Substance: LACTULOSE
     Indication: Product used for unknown indication
     Dosage: 20 MG, Q8H
     Route: 048
     Dates: start: 2024
  4. LAMOTRIGINE [Concomitant]
     Active Substance: LAMOTRIGINE
     Indication: Bipolar disorder
     Dosage: 75 MG, QD
     Route: 048
     Dates: start: 2018
  5. LEVOTHYROXINE [Concomitant]
     Active Substance: LEVOTHYROXINE
     Indication: Product used for unknown indication
     Dosage: 25.000UG QD(COMPRIM? S?CABLE)
     Route: 048
     Dates: start: 20240611
  6. PAROEX [Concomitant]
     Active Substance: CHLORHEXIDINE GLUCONATE
     Indication: Product used for unknown indication
     Route: 002
     Dates: start: 2024
  7. ZOPICLONE [Concomitant]
     Active Substance: ZOPICLONE
     Indication: Product used for unknown indication
     Dosage: 3.75 MG, QD
     Route: 048
     Dates: start: 2024
  8. AMISULPRIDE [Interacting]
     Active Substance: AMISULPRIDE
     Indication: Bipolar disorder
     Dosage: 100.000MG QD
     Route: 048
     Dates: start: 2018
  9. DIAZEPAM [Interacting]
     Active Substance: DIAZEPAM
     Indication: Product used for unknown indication
     Dosage: 5 MG, Q12H
     Route: 048
     Dates: start: 201902
  10. BIMATOPROST\TIMOLOL [Interacting]
     Active Substance: BIMATOPROST\TIMOLOL
     Indication: Glaucoma
     Dosage: 1.000DROP (1/12 MILLILITRE) QD(300 MICROGRAMMES/ML + 5 MG/ML, COLLYRE EN SOLUTION)
     Route: 047
     Dates: start: 2023
  11. EBASTINE [Interacting]
     Active Substance: EBASTINE
     Indication: Product used for unknown indication
     Dosage: 10.000MG QD( LYOPHILISAT ORAL)
     Route: 048
     Dates: start: 2018
  12. LANSOPRAZOLE [Interacting]
     Active Substance: LANSOPRAZOLE
     Indication: Gastroduodenal ulcer
     Dosage: 15 MG, QD
     Route: 048
     Dates: start: 2023
  13. ONDANSETRON [Interacting]
     Active Substance: ONDANSETRON
     Indication: Vomiting
     Dosage: 4 MG, Q8H
     Route: 042
     Dates: start: 2024
  14. POSACONAZOLE [Interacting]
     Active Substance: POSACONAZOLE
     Indication: Oral candidiasis
     Dosage: 400 MG, Q12H
     Route: 048
     Dates: start: 20240718

REACTIONS (1)
  - Cardiac arrest [Fatal]

NARRATIVE: CASE EVENT DATE: 20240725
